FAERS Safety Report 22368999 (Version 1)
Quarter: 2023Q2

REPORT INFORMATION
  Report Type: Spontaneous
  Country: None (occurrence: US)
  Receive Date: 20230525
  Receipt Date: 20230525
  Transmission Date: 20230721
  Serious: No
  Sender: FDA-Public Use
  Company Number: US-Akorn Operating Company, LLC-2142014

PATIENT
  Age: 15 Year
  Sex: Male

DRUGS (2)
  1. FENTANYL CITRATE [Suspect]
     Active Substance: FENTANYL CITRATE
  2. PROPOFOL [Concomitant]
     Active Substance: PROPOFOL

REACTIONS (1)
  - Supraventricular tachycardia [Recovered/Resolved]
